FAERS Safety Report 20647238 (Version 1)
Quarter: 2022Q1

REPORT INFORMATION
  Report Type: Report from Study
  Country: CA (occurrence: CA)
  Receive Date: 20220329
  Receipt Date: 20220329
  Transmission Date: 20220423
  Serious: Yes (Other)
  Sender: FDA-Public Use
  Company Number: CA-CHIESI-2022CHF01424

PATIENT
  Sex: Female
  Weight: 43 kg

DRUGS (1)
  1. DEFERIPRONE [Suspect]
     Active Substance: DEFERIPRONE
     Indication: Thalassaemia
     Dosage: 5000 MILLIGRAM, QD
     Route: 048

REACTIONS (1)
  - Haematuria [Not Recovered/Not Resolved]
